FAERS Safety Report 14573704 (Version 6)
Quarter: 2018Q1

REPORT INFORMATION
  Report Type: Spontaneous
  Country: FR (occurrence: FR)
  Receive Date: 20180226
  Receipt Date: 20180318
  Transmission Date: 20180509
  Serious: Yes (Life-Threatening, Other)
  Sender: FDA-Public Use
  Company Number: PHHY2017FR192840

PATIENT
  Age: 11 Year
  Sex: Male

DRUGS (22)
  1. CICLOSPORIN [Suspect]
     Active Substance: CYCLOSPORINE
     Indication: PROPHYLAXIS AGAINST GRAFT VERSUS HOST DISEASE
  2. DOXORUBICIN [Suspect]
     Active Substance: DOXORUBICIN
     Dosage: 350 MG/M2, CYCLIC (FIVE COURSES)
     Route: 065
  3. DOXORUBICIN [Suspect]
     Active Substance: DOXORUBICIN
     Indication: EWING^S SARCOMA
  4. THIOTEPA. [Concomitant]
     Active Substance: THIOTEPA
     Indication: BONE MARROW CONDITIONING REGIMEN
  5. VINCRISTINE [Suspect]
     Active Substance: VINCRISTINE
     Indication: EWING^S SARCOMA
  6. BUSULFAN. [Concomitant]
     Active Substance: BUSULFAN
     Dosage: 0.91 MG/KG, Q8H (0.82 ADJUSTED TO 0.91, DAYS -6 TO -2)
     Route: 065
  7. ETOPOSIDE. [Suspect]
     Active Substance: ETOPOSIDE
     Indication: EWING^S SARCOMA
  8. CYCLOPHOSPHAMIDE. [Suspect]
     Active Substance: CYCLOPHOSPHAMIDE
     Indication: EWING^S SARCOMA
     Dosage: 6.2 MG/M2, CYCLIC (FIVE COURSES)
     Route: 065
  9. ACTINOMYCIN D [Suspect]
     Active Substance: DACTINOMYCIN
     Dosage: 5.2 MG/M2, CYCLIC (FIVE COURSES)
     Route: 065
  10. ANTITHYMOCYTE IMMUNOGLOBULIN [Suspect]
     Active Substance: THYMOCYTE IMMUNE GLOBULIN NOS
     Indication: PROPHYLAXIS AGAINST GRAFT VERSUS HOST DISEASE
  11. ACTINOMYCIN D [Suspect]
     Active Substance: DACTINOMYCIN
     Indication: EWING^S SARCOMA
  12. VINCRISTINE [Suspect]
     Active Substance: VINCRISTINE
     Dosage: 17.7 MG/M2, CYCLIC (FIVE COURSES)
     Route: 065
  13. THIOTEPA. [Concomitant]
     Active Substance: THIOTEPA
     Indication: PRODUCT USED FOR UNKNOWN INDICATION
  14. ANTITHYMOCYTE IMMUNOGLOBULIN [Suspect]
     Active Substance: THYMOCYTE IMMUNE GLOBULIN NOS
     Indication: STEM CELL TRANSPLANT
     Dosage: 7.5 MG/KG, ONCE/SINGLE (INJECTIONS AT DAY -5, -3, AND -1)
     Route: 065
  15. IFOSFAMIDE. [Suspect]
     Active Substance: IFOSFAMIDE
     Indication: EWING^S SARCOMA
  16. ETOPOSIDE. [Suspect]
     Active Substance: ETOPOSIDE
     Dosage: 2.5 MG/M2, CYCLIC (FIVE COURSES)
     Route: 065
  17. FLUDARABINE [Suspect]
     Active Substance: FLUDARABINE PHOSPHATE
     Indication: EWING^S SARCOMA
     Dosage: 40 MG/M2, QD (DAY -11 TO -8)
     Route: 065
  18. THIOTEPA. [Concomitant]
     Active Substance: THIOTEPA
     Dosage: 300 MG/M2, UNK (AT DAY -7)
     Route: 005
  19. BUSULFAN. [Concomitant]
     Active Substance: BUSULFAN
     Indication: PRODUCT USED FOR UNKNOWN INDICATION
     Dosage: 1 DF, UNK
     Route: 065
  20. CICLOSPORIN [Suspect]
     Active Substance: CYCLOSPORINE
     Indication: STEM CELL TRANSPLANT
     Dosage: UNK
     Route: 065
  21. IFOSFAMIDE. [Suspect]
     Active Substance: IFOSFAMIDE
     Dosage: 59 MG/M2, CYCLIC (FIVE COURSES)
     Route: 065
  22. BUSULFAN. [Concomitant]
     Active Substance: BUSULFAN
     Indication: BONE MARROW CONDITIONING REGIMEN
     Dosage: 1 DF, UNK
     Route: 065

REACTIONS (6)
  - Thrombocytopenia [Unknown]
  - Haematotoxicity [Recovered/Resolved]
  - Off label use [Unknown]
  - Chronic myelomonocytic leukaemia [Recovered/Resolved]
  - Anaemia [Unknown]
  - Acute graft versus host disease in skin [Unknown]
